FAERS Safety Report 5858926-8 (Version None)
Quarter: 2008Q3

REPORT INFORMATION
  Report Type: 
  Country: None (occurrence: None)
  Receive Date: 20080825
  Receipt Date: 20080811
  Transmission Date: 20090109
  Serious: Yes (Hospitalization)
  Sender: FDA-Public Use
  Company Number: 2008AL005920

PATIENT
  Age: 81 Year
  Sex: Female

DRUGS (1)
  1. DIGOXIN [Suspect]
     Indication: HEART RATE IRREGULAR
     Dosage: DAILY, PO; YEARS
     Route: 048

REACTIONS (3)
  - DYSPNOEA [None]
  - MENTAL DISORDER [None]
  - VISUAL IMPAIRMENT [None]
